FAERS Safety Report 5555376-9 (Version None)
Quarter: 2007Q4

REPORT INFORMATION
  Report Type: 
  Country: None (occurrence: None)
  Receive Date: 20071213
  Receipt Date: 20070817
  Transmission Date: 20080405
  Serious: No
  Sender: FDA-Public Use
  Company Number: US-AMGEN-KDL238127

PATIENT
  Sex: Female
  Weight: 60.4 kg

DRUGS (1)
  1. ENBREL [Suspect]
     Indication: RHEUMATOID ARTHRITIS
     Route: 058
     Dates: start: 20000101, end: 20060601

REACTIONS (3)
  - BRONCHIAL DISORDER [None]
  - PRODUCTIVE COUGH [None]
  - PULMONARY FIBROSIS [None]
